FAERS Safety Report 17435952 (Version 2)
Quarter: 2020Q1

REPORT INFORMATION
  Report Type: Spontaneous
  Country: DK (occurrence: DK)
  Receive Date: 20200219
  Receipt Date: 20200221
  Transmission Date: 20200409
  Serious: Yes (Other)
  Sender: FDA-Public Use
  Company Number: DK-PFIZER INC-2020071144

PATIENT
  Age: 44 Year
  Sex: Male

DRUGS (11)
  1. CORODIL [ENALAPRIL MALEATE] [Suspect]
     Active Substance: ENALAPRIL MALEATE
     Indication: HYPERTENSION
     Dosage: DOSE: UNKNOWN
     Route: 048
  2. ATORVASTATIN [Concomitant]
     Active Substance: ATORVASTATIN
     Indication: HYPERCHOLESTEROLAEMIA
     Dosage: STRENGTH 10 MG.
     Route: 048
     Dates: start: 20150424
  3. CENTYL MITE MED KALIUMKLORID [Concomitant]
     Indication: DIURETIC THERAPY
     Dosage: STRENGTH: UNKNOWN, DOSE: UNKNOWN
     Route: 048
     Dates: start: 20100301
  4. AMLODIPINE BESILATE [Suspect]
     Active Substance: AMLODIPINE BESYLATE
     Indication: HYPERTENSION
     Dosage: UNK
     Route: 048
     Dates: start: 20100208
  5. HJERTEMAGNYL [ACETYLSALICYLIC ACID] [Concomitant]
     Active Substance: ASPIRIN
     Indication: ANTICOAGULANT THERAPY
     Dosage: STRENGTH: 75 MG.
     Route: 048
     Dates: start: 20140505
  6. PREDNISOLONE. [Concomitant]
     Active Substance: PREDNISOLONE
     Indication: POLYMYALGIA RHEUMATICA
     Dosage: DOSE: UNKNOWN
  7. EZETIMIBE. [Concomitant]
     Active Substance: EZETIMIBE
     Indication: HYPERCHOLESTEROLAEMIA
     Dosage: 10 MG, QD
     Route: 048
     Dates: start: 20150819
  8. SIMVASTATIN. [Concomitant]
     Active Substance: SIMVASTATIN
     Indication: HYPERCHOLESTEROLAEMIA
     Dosage: STRENGTH: UNKNOWN, DOSE: UNKNOWN
     Route: 048
     Dates: start: 2005, end: 2012
  9. RANID [Suspect]
     Active Substance: RANITIDINE
     Indication: HYPERTENSION
     Dosage: STRENGTH: 5+25 MG
     Route: 048
     Dates: end: 20160526
  10. RAMIPRIL. [Suspect]
     Active Substance: RAMIPRIL
     Indication: HYPERTENSION
     Dosage: UNK
     Route: 048
     Dates: start: 20110216
  11. THYCAPZOL [Concomitant]
     Active Substance: METHIMAZOLE
     Indication: HYPERTHYROIDISM
     Dosage: 5 MG, QD
     Route: 048
     Dates: start: 2016, end: 20190508

REACTIONS (5)
  - Blood creatinine increased [Unknown]
  - Myoglobin blood increased [Unknown]
  - Protein urine present [Unknown]
  - Chronic kidney disease [Not Recovered/Not Resolved]
  - Fatigue [Unknown]

NARRATIVE: CASE EVENT DATE: 2007
